FAERS Safety Report 24805736 (Version 3)
Quarter: 2025Q2

REPORT INFORMATION
  Report Type: Spontaneous
  Country: CH (occurrence: CH)
  Receive Date: 20250103
  Receipt Date: 20250630
  Transmission Date: 20250717
  Serious: Yes (Life-Threatening, Hospitalization, Disabling, Other)
  Sender: PFIZER
  Company Number: CH-PFIZER INC-PV202400169772

PATIENT
  Age: 37 Year
  Sex: Male
  Weight: 65 kg

DRUGS (1)
  1. VARENICLINE TARTRATE [Suspect]
     Active Substance: VARENICLINE TARTRATE
     Indication: Smoking cessation therapy
     Dosage: UNK UNK, 2X/DAY(AS PRESCRIBED)
     Route: 048
     Dates: start: 2014, end: 2015

REACTIONS (9)
  - Cerebral haemangioma [Unknown]
  - Migraine [Not Recovered/Not Resolved]
  - Mood swings [Unknown]
  - Gastrointestinal disorder [Unknown]
  - Condition aggravated [Unknown]
  - Regurgitation [Unknown]
  - Balance disorder [Unknown]
  - Dysphemia [Unknown]
  - Headache [Not Recovered/Not Resolved]

NARRATIVE: CASE EVENT DATE: 20210101
